FAERS Safety Report 10019075 (Version 1)
Quarter: 2014Q1

REPORT INFORMATION
  Report Type: Spontaneous
  Country: US (occurrence: US)
  Receive Date: 20140318
  Receipt Date: 20140318
  Transmission Date: 20141002
  Serious: Yes (Hospitalization)
  Sender: FDA-Public Use
  Company Number: US-JNJFOC-20140307632

PATIENT
  Age: 60 Year
  Sex: Male
  Weight: 100 kg

DRUGS (6)
  1. REMICADE [Suspect]
     Indication: CROHN^S DISEASE
     Route: 042
  2. ZYLOPRIM [Concomitant]
     Route: 065
  3. PRILOSEC [Concomitant]
     Route: 065
  4. PRAVASTATIN [Concomitant]
     Route: 065
  5. WARFARIN [Concomitant]
     Route: 065
     Dates: start: 201402
  6. LOVENOX [Concomitant]
     Route: 065

REACTIONS (1)
  - Pulmonary embolism [Unknown]
